FAERS Safety Report 5124825-2 (Version None)
Quarter: 2006Q4

REPORT INFORMATION
  Report Type: 
  Country: None (occurrence: None)
  Receive Date: 20061011
  Receipt Date: 20060828
  Transmission Date: 20070319
  Serious: Yes (Hospitalization)
  Sender: FDA-Public Use
  Company Number: JP-ROCHE-461433

PATIENT
  Age: 59 Year
  Sex: Female
  Weight: 55 kg

DRUGS (3)
  1. PEGASYS [Suspect]
     Route: 058
     Dates: start: 20060511, end: 20060810
  2. BANAN [Concomitant]
     Route: 048
     Dates: start: 20060508, end: 20060518
  3. CEFZON [Concomitant]
     Route: 048
     Dates: start: 20060508, end: 20060518

REACTIONS (6)
  - ABSCESS [None]
  - BACK PAIN [None]
  - ERYTHEMA NODOSUM [None]
  - IMMUNOSUPPRESSION [None]
  - PYREXIA [None]
  - WHITE BLOOD CELL COUNT DECREASED [None]
